FAERS Safety Report 7242695-3 (Version None)
Quarter: 2011Q1

REPORT INFORMATION
  Report Type: 
  Country: None (occurrence: None)
  Receive Date: 20110125
  Receipt Date: 20110119
  Transmission Date: 20110831
  Serious: Yes (Death)
  Sender: FDA-Public Use
  Company Number: FR-BRISTOL-MYERS SQUIBB COMPANY-15500283

PATIENT
  Age: 77 Year
  Sex: Female

DRUGS (1)
  1. SPRYCEL [Suspect]
     Indication: CHRONIC MYELOID LEUKAEMIA
     Dosage: 04JAN10-29JUN10:100 MG/D;30JUN10-OCT10:80 MG/D
     Route: 048
     Dates: start: 20100104, end: 20101001

REACTIONS (1)
  - LUNG NEOPLASM MALIGNANT [None]
